FAERS Safety Report 8388416 (Version 2)
Quarter: 2013Q1

REPORT INFORMATION
  Report Type: Spontaneous
  Country: US (occurrence: US)
  Receive Date: 20120203
  Receipt Date: 20130213
  Transmission Date: 20140127
  Serious: Yes (Other)
  Sender: FDA-Public Use
  Company Number: US-GLAXOSMITHKLINE-A0948639A

PATIENT
  Age: 53 Year
  Sex: Male

DRUGS (16)
  1. LAMICTAL [Suspect]
     Indication: CONVULSION
     Route: 048
     Dates: start: 20110926
  2. LAMICTAL [Suspect]
     Indication: CONVULSION
     Dosage: 150MG TWICE PER DAY
     Route: 048
     Dates: start: 201010
  3. PAXIL [Concomitant]
  4. DILANTIN [Concomitant]
  5. VITAMIN D3 [Concomitant]
  6. CALCIUM [Concomitant]
  7. CLONAZEPAM [Concomitant]
  8. SENNA [Concomitant]
  9. AMITIZA [Concomitant]
  10. CLOZAPINE [Concomitant]
     Dates: start: 1990
  11. THYROXINE [Concomitant]
  12. ASPIRIN [Concomitant]
  13. ATENOLOL [Concomitant]
  14. MIRALAX [Concomitant]
  15. UNSPECIFIED MEDICATION [Concomitant]
  16. DOCUSATE [Concomitant]

REACTIONS (12)
  - Encephalopathy [Unknown]
  - Rash follicular [Unknown]
  - Pruritus generalised [Unknown]
  - Acne [Unknown]
  - Amnesia [Not Recovered/Not Resolved]
  - Confusional state [Not Recovered/Not Resolved]
  - Staring [Not Recovered/Not Resolved]
  - Catatonia [Not Recovered/Not Resolved]
  - Constipation [Not Recovered/Not Resolved]
  - Flatulence [Not Recovered/Not Resolved]
  - Abdominal distension [Not Recovered/Not Resolved]
  - Memory impairment [Unknown]
